FAERS Safety Report 18194667 (Version 1)
Quarter: 2020Q3

REPORT INFORMATION
  Report Type: Report from Study
  Country: US (occurrence: US)
  Receive Date: 20200826
  Receipt Date: 20200826
  Transmission Date: 20201103
  Serious: Yes (Other)
  Sender: FDA-Public Use
  Company Number: US-BEH-2020121753

PATIENT
  Age: 12 Year
  Sex: Female

DRUGS (1)
  1. HAEGARDA [Suspect]
     Active Substance: HUMAN C1-ESTERASE INHIBITOR
     Dosage: UNK
     Route: 065
     Dates: end: 202006

REACTIONS (4)
  - Therapy cessation [Unknown]
  - Swelling [Unknown]
  - No adverse event [Unknown]
  - Swelling [Unknown]

NARRATIVE: CASE EVENT DATE: 202004
